FAERS Safety Report 6135637-5 (Version None)
Quarter: 2009Q1

REPORT INFORMATION
  Report Type: 
  Country: None (occurrence: None)
  Receive Date: 20090327
  Receipt Date: 20081209
  Transmission Date: 20090719
  Serious: Yes (Other)
  Sender: FDA-Public Use
  Company Number: US-ASTRAZENECA-2008AP09791

PATIENT
  Age: 78 Year
  Sex: Male

DRUGS (4)
  1. ZESTRIL [Suspect]
     Indication: MYOCARDIAL INFARCTION
     Route: 048
  2. ADALAT [Concomitant]
  3. ROFECOXIB (MSD) [Concomitant]
  4. HYDROCHLOROTHIAZIDE [Concomitant]

REACTIONS (1)
  - RENAL FAILURE ACUTE [None]
